FAERS Safety Report 24209028 (Version 1)
Quarter: 2024Q3

REPORT INFORMATION
  Report Type: Spontaneous
  Country: CA (occurrence: CA)
  Receive Date: 20240814
  Receipt Date: 20240814
  Transmission Date: 20241017
  Serious: Yes (Hospitalization, Other)
  Sender: AUROBINDO
  Company Number: CA-AUROBINDO-AUR-APL-2024-040009

PATIENT
  Age: 84 Year
  Sex: Male
  Weight: 65 kg

DRUGS (1)
  1. CYCLOBENZAPRINE [Suspect]
     Active Substance: CYCLOBENZAPRINE
     Indication: Product used for unknown indication
     Dosage: 10 MILLIGRAM, 3 TIMES A DAY
     Route: 048

REACTIONS (2)
  - Delirium [Recovering/Resolving]
  - Agitation [Recovering/Resolving]
